FAERS Safety Report 5608731-2 (Version None)
Quarter: 2008Q1

REPORT INFORMATION
  Report Type: 
  Country: None (occurrence: None)
  Receive Date: 20080131
  Receipt Date: 20071024
  Transmission Date: 20080703
  Serious: No
  Sender: FDA-Public Use
  Company Number: US-BAYER-US-2007-040976

PATIENT
  Age: 27 Year
  Sex: Female
  Weight: 93 kg

DRUGS (2)
  1. MIRENA [Suspect]
     Indication: CONTRACEPTION
     Route: 015
     Dates: start: 20070817, end: 20070901
  2. LYRICA [Concomitant]
     Indication: FIBROMYALGIA

REACTIONS (3)
  - ABDOMINAL PAIN LOWER [None]
  - INTRA-UTERINE CONTRACEPTIVE DEVICE EXPELLED [None]
  - PELVIC PAIN [None]
